FAERS Safety Report 23031979 (Version 1)
Quarter: 2023Q4

REPORT INFORMATION
  Report Type: Spontaneous
  Country: JP (occurrence: JP)
  Receive Date: 20231005
  Receipt Date: 20231005
  Transmission Date: 20240110
  Serious: Yes (Other)
  Sender: FDA-Public Use
  Company Number: JP-MYLANLABS-2023M1103345

PATIENT
  Age: 7 Decade
  Sex: Female
  Weight: 45 kg

DRUGS (21)
  1. PAROXETINE [Suspect]
     Active Substance: PAROXETINE
     Indication: Post-traumatic stress disorder
     Dosage: UNK
     Route: 065
  2. PREGABALIN [Suspect]
     Active Substance: PREGABALIN
     Indication: Post-traumatic stress disorder
     Dosage: UNK
     Route: 065
  3. SERTRALINE [Suspect]
     Active Substance: SERTRALINE HYDROCHLORIDE
     Indication: Post-traumatic stress disorder
     Dosage: UNK
     Route: 065
  4. QUETIAPINE [Suspect]
     Active Substance: QUETIAPINE
     Indication: Post-traumatic stress disorder
     Dosage: UNK
     Route: 065
  5. ATOMOXETINE [Suspect]
     Active Substance: ATOMOXETINE
     Indication: Post-traumatic stress disorder
     Dosage: 40 MILLIGRAM, QD
     Route: 065
  6. ATOMOXETINE [Suspect]
     Active Substance: ATOMOXETINE
     Indication: Pain
     Dosage: 60 MILLIGRAM, QD
     Route: 065
  7. ATOMOXETINE [Suspect]
     Active Substance: ATOMOXETINE
     Indication: Attention deficit hyperactivity disorder
     Dosage: 80 MILLIGRAM, QD
     Route: 065
  8. ATOMOXETINE [Suspect]
     Active Substance: ATOMOXETINE
     Dosage: 90 MILLIGRAM, QD
     Route: 065
  9. ATOMOXETINE [Suspect]
     Active Substance: ATOMOXETINE
     Dosage: 100 MILLIGRAM, QD
     Route: 065
  10. ATOMOXETINE [Suspect]
     Active Substance: ATOMOXETINE
     Dosage: 110 MILLIGRAM, QD
     Route: 065
  11. ATOMOXETINE [Suspect]
     Active Substance: ATOMOXETINE
     Dosage: 120 MILLIGRAM, QD
     Route: 065
  12. ATOMOXETINE [Suspect]
     Active Substance: ATOMOXETINE
     Dosage: THE PATIENT DOSE OF ATOMOXETINE WAS MAINTAINED AT 90-120MG/DAY UNTIL DAY 1288
     Route: 065
  13. AMITRIPTYLINE [Suspect]
     Active Substance: AMITRIPTYLINE
     Indication: Pain
     Dosage: UNK
     Route: 065
  14. CHLORPROMAZINE [Suspect]
     Active Substance: CHLORPROMAZINE
     Indication: Post-traumatic stress disorder
     Dosage: UNK
     Route: 065
  15. NORTRIPTYLINE [Suspect]
     Active Substance: NORTRIPTYLINE
     Indication: Post-traumatic stress disorder
     Dosage: UNK
     Route: 065
  16. FLUVOXAMINE [Suspect]
     Active Substance: FLUVOXAMINE
     Indication: Post-traumatic stress disorder
     Dosage: UNK
     Route: 065
  17. SULPIRIDE [Suspect]
     Active Substance: SULPIRIDE
     Indication: Post-traumatic stress disorder
     Dosage: UNK
     Route: 065
  18. MILNACIPRAN [Suspect]
     Active Substance: MILNACIPRAN
     Indication: Post-traumatic stress disorder
     Dosage: UNK
     Route: 065
  19. PEROSPIRONE [Suspect]
     Active Substance: PEROSPIRONE
     Indication: Post-traumatic stress disorder
     Dosage: UNK
     Route: 065
  20. LEVOMEPROMAZINE [Suspect]
     Active Substance: LEVOMEPROMAZINE
     Indication: Post-traumatic stress disorder
     Dosage: UNK
     Route: 065
  21. GUANFACINE [Suspect]
     Active Substance: GUANFACINE
     Indication: Attention deficit hyperactivity disorder
     Dosage: 2 MILLIGRAM, QD
     Route: 065

REACTIONS (11)
  - Drug ineffective [Unknown]
  - Hyperhidrosis [Unknown]
  - Nausea [Unknown]
  - Weight decreased [Recovering/Resolving]
  - Dizziness [Unknown]
  - Hypotension [Unknown]
  - Weight increased [Unknown]
  - Pain [Unknown]
  - Intentional product misuse [Unknown]
  - Treatment noncompliance [Unknown]
  - Off label use [Unknown]
